FAERS Safety Report 6735296-4 (Version None)
Quarter: 2010Q2

REPORT INFORMATION
  Report Type: 
  Country: None (occurrence: None)
  Receive Date: 20100520
  Receipt Date: 20100520
  Transmission Date: 20101027
  Serious: Yes (Other)
  Sender: FDA-Public Use
  Company Number: None

PATIENT
  Sex: Male

DRUGS (4)
  1. DEPAKENE [Suspect]
     Indication: EPILEPSY
     Dosage: 250MG/5ML 15ML TID GTUBE
  2. LAMICTAL [Concomitant]
  3. KEPPRA [Concomitant]
  4. DIASTAT [Concomitant]

REACTIONS (2)
  - DIARRHOEA [None]
  - PRODUCT SUBSTITUTION ISSUE [None]
